FAERS Safety Report 15377805 (Version 2)
Quarter: 2018Q4

REPORT INFORMATION
  Report Type: Spontaneous
  Country: US (occurrence: US)
  Receive Date: 20180913
  Receipt Date: 20181031
  Transmission Date: 20190204
  Serious: No
  Sender: FDA-Public Use
  Company Number: US-SA-2018SA253829

PATIENT
  Age: 22 Year
  Sex: Female
  Weight: 61.6 kg

DRUGS (1)
  1. DUPIXENT [Suspect]
     Active Substance: DUPILUMAB
     Dosage: 300 MG, QOW
     Route: 058
     Dates: start: 20170926

REACTIONS (1)
  - Conjunctivitis [Unknown]

NARRATIVE: CASE EVENT DATE: 20180401
